FAERS Safety Report 12451297 (Version 3)
Quarter: 2016Q2

REPORT INFORMATION
  Report Type: Spontaneous
  Country: DE (occurrence: DE)
  Receive Date: 20160609
  Receipt Date: 20160622
  Transmission Date: 20160815
  Serious: Yes (Death, Hospitalization)
  Sender: FDA-Public Use
  Company Number: DE-JNJFOC-20160605350

PATIENT
  Age: 87 Year
  Sex: Female

DRUGS (22)
  1. LORAZEPAM. [Suspect]
     Active Substance: LORAZEPAM
     Indication: RESTLESSNESS
     Route: 065
     Dates: start: 20150629, end: 20150630
  2. ZUCLOPENTHIXOL DIHYDROCHLORIDE [Suspect]
     Active Substance: ZUCLOPENTHIXOL HYDROCHLORIDE
     Indication: RESTLESSNESS
     Route: 048
     Dates: start: 20150623, end: 20150701
  3. LORAZEPAM. [Suspect]
     Active Substance: LORAZEPAM
     Indication: RESTLESSNESS
     Route: 065
     Dates: start: 20150627, end: 20150628
  4. LORAZEPAM. [Suspect]
     Active Substance: LORAZEPAM
     Indication: RESTLESSNESS
     Route: 065
     Dates: start: 20150107
  5. TRAZODONE [Suspect]
     Active Substance: TRAZODONE HYDROCHLORIDE
     Indication: RESTLESSNESS
     Route: 048
     Dates: start: 20150702
  6. TRAZODONE [Suspect]
     Active Substance: TRAZODONE HYDROCHLORIDE
     Indication: RESTLESSNESS
     Route: 048
     Dates: start: 20150623, end: 20150701
  7. PANTOPRAZOLE [Concomitant]
     Active Substance: PANTOPRAZOLE SODIUM
     Route: 065
     Dates: start: 20130403, end: 20150702
  8. LORAZEPAM. [Suspect]
     Active Substance: LORAZEPAM
     Indication: RESTLESSNESS
     Route: 065
     Dates: start: 20150702
  9. NOVAMINSULFON [Concomitant]
     Active Substance: METAMIZOLE
     Route: 048
     Dates: start: 2014, end: 20150702
  10. LORAZEPAM. [Suspect]
     Active Substance: LORAZEPAM
     Indication: RESTLESSNESS
     Route: 065
     Dates: start: 20150625, end: 20150626
  11. BISOPROLOL [Suspect]
     Active Substance: BISOPROLOL
     Indication: PRODUCT USED FOR UNKNOWN INDICATION
     Route: 048
     Dates: start: 2013, end: 20150702
  12. NATRIUMHYDROGENCARBONAT [Concomitant]
     Active Substance: SODIUM BICARBONATE
     Route: 042
     Dates: start: 20150702
  13. HALOPERIDOL. [Concomitant]
     Active Substance: HALOPERIDOL
     Route: 065
     Dates: end: 20150622
  14. XARELTO [Suspect]
     Active Substance: RIVAROXABAN
     Indication: PRODUCT USED FOR UNKNOWN INDICATION
     Route: 048
     Dates: start: 20130226, end: 20150702
  15. ZUCLOPENTHIXOL DIHYDROCHLORIDE [Suspect]
     Active Substance: ZUCLOPENTHIXOL HYDROCHLORIDE
     Indication: RESTLESSNESS
     Route: 048
     Dates: start: 20150702
  16. MELPERON [Suspect]
     Active Substance: MELPERONE
     Indication: PRODUCT USED FOR UNKNOWN INDICATION
     Route: 048
     Dates: start: 2014, end: 20150702
  17. LORAZEPAM. [Suspect]
     Active Substance: LORAZEPAM
     Indication: RESTLESSNESS
     Route: 065
     Dates: start: 20150610, end: 20150616
  18. FUROSEMIDE. [Suspect]
     Active Substance: FUROSEMIDE
     Indication: PRODUCT USED FOR UNKNOWN INDICATION
     Route: 065
     Dates: start: 2013, end: 20150702
  19. CIPROFLOXACIN. [Concomitant]
     Active Substance: CIPROFLOXACIN
     Indication: URINARY TRACT INFECTION
     Route: 065
     Dates: start: 20150611, end: 20150622
  20. LORAZEPAM. [Suspect]
     Active Substance: LORAZEPAM
     Indication: RESTLESSNESS
     Route: 065
     Dates: start: 20150623
  21. LORAZEPAM. [Suspect]
     Active Substance: LORAZEPAM
     Indication: RESTLESSNESS
     Route: 065
     Dates: start: 20150617, end: 20150622
  22. LORAZEPAM. [Suspect]
     Active Substance: LORAZEPAM
     Indication: RESTLESSNESS
     Route: 065
     Dates: start: 20150624

REACTIONS (2)
  - Cardio-respiratory arrest [Fatal]
  - Fall [Not Recovered/Not Resolved]

NARRATIVE: CASE EVENT DATE: 20150628
